FAERS Safety Report 7619367-6 (Version None)
Quarter: 2011Q3

REPORT INFORMATION
  Report Type: 
  Country: None (occurrence: None)
  Receive Date: 20110719
  Receipt Date: 20110713
  Transmission Date: 20111222
  Serious: Yes (Hospitalization)
  Sender: FDA-Public Use
  Company Number: US-BIOGENIDEC-2011BI020634

PATIENT
  Age: 46 Year
  Sex: Male
  Weight: 99 kg

DRUGS (14)
  1. NAPROXEN [Concomitant]
     Route: 048
  2. TIZANIDINE HCL [Concomitant]
     Route: 048
  3. ABILIFY [Concomitant]
     Route: 048
  4. CITALOPRAM HYDROBROMIDE [Concomitant]
     Route: 048
  5. COZAAR [Concomitant]
     Route: 048
  6. SEROQUEL [Concomitant]
     Route: 048
  7. VITAMIN D [Concomitant]
     Route: 048
  8. DOXCYCLINE [Concomitant]
     Route: 048
  9. LEVITRA [Concomitant]
     Route: 048
  10. BACLOFEN [Concomitant]
     Route: 048
  11. LYRICA [Concomitant]
     Route: 048
  12. TYSABRI [Suspect]
     Indication: MULTIPLE SCLEROSIS
     Route: 042
     Dates: start: 20090609
  13. DESIPRAMIDE HCL [Concomitant]
     Route: 048
  14. OXYBUTYNIN [Concomitant]
     Route: 048

REACTIONS (1)
  - ACUTE MYOCARDIAL INFARCTION [None]
